FAERS Safety Report 5293847-3 (Version None)
Quarter: 2007Q2

REPORT INFORMATION
  Report Type: 
  Country: None (occurrence: None)
  Receive Date: 20070411
  Receipt Date: 20070405
  Transmission Date: 20071010
  Serious: Yes (Hospitalization)
  Sender: FDA-Public Use
  Company Number: US-MERCK-0704USA01003

PATIENT
  Sex: Female

DRUGS (2)
  1. INVANZ [Suspect]
     Indication: URINARY TRACT INFECTION
     Route: 065
  2. INVANZ [Suspect]
     Route: 065

REACTIONS (1)
  - MUSCULAR WEAKNESS [None]
